FAERS Safety Report 4871710-7 (Version None)
Quarter: 2005Q4

REPORT INFORMATION
  Report Type: 
  Country: None (occurrence: None)
  Receive Date: 20051230
  Receipt Date: 20051222
  Transmission Date: 20060501
  Serious: Yes (Hospitalization)
  Sender: FDA-Public Use
  Company Number: 28275

PATIENT
  Age: 45 Year
  Sex: Female

DRUGS (1)
  1. ALDARA [Suspect]
     Indication: BASAL CELL CARCINOMA
     Dosage: (5 IN 1 WEEK (S)), TOPICAL
     Route: 061
     Dates: start: 20041201, end: 20050101

REACTIONS (5)
  - ABSCESS [None]
  - APPLICATION SITE REACTION [None]
  - MOUTH ULCERATION [None]
  - PHARYNGOLARYNGEAL PAIN [None]
  - SKIN ULCER [None]
